FAERS Safety Report 9040059 (Version 1)
Quarter: 2013Q1

REPORT INFORMATION
  Report Type: Report from Study
  Country: US (occurrence: US)
  Receive Date: 20130130
  Receipt Date: 20130130
  Transmission Date: 20140127
  Serious: No
  Sender: FDA-Public Use
  Company Number: US-ABBOTT-12P-163-0951427-00

PATIENT
  Age: 39 Year
  Sex: Female

DRUGS (6)
  1. HUMIRA 40 MG/0.8 ML PEN [Suspect]
     Indication: CROHN^S DISEASE
     Dates: start: 201010
  2. HUMIRA 40 MG/0.8 ML PEN [Suspect]
     Dates: start: 201202
  3. SYNTHROID [Concomitant]
     Indication: THYROID DISORDER
     Dosage: 0.237 MCG DAILY
  4. AMBIEN [Concomitant]
     Indication: INSOMNIA
     Dosage: 10-15 MG NIGHTLY
  5. IMPLANON [Concomitant]
     Indication: ENDOMETRIOSIS
  6. METAMUCIL [Concomitant]
     Indication: PRODUCT USED FOR UNKNOWN INDICATION
     Dosage: DAILY

REACTIONS (19)
  - Injection site pain [Not Recovered/Not Resolved]
  - Crohn^s disease [Not Recovered/Not Resolved]
  - Unevaluable event [Not Recovered/Not Resolved]
  - Haemorrhage [Not Recovered/Not Resolved]
  - Injection site vesicles [Unknown]
  - Injection site pain [Unknown]
  - Injection site erythema [Unknown]
  - Injection site bruising [Unknown]
  - Incorrect dose administered [Unknown]
  - Crohn^s disease [Not Recovered/Not Resolved]
  - Diarrhoea [Not Recovered/Not Resolved]
  - Anorectal discomfort [Not Recovered/Not Resolved]
  - Haematochezia [Not Recovered/Not Resolved]
  - Injection site vesicles [Not Recovered/Not Resolved]
  - Incorrect dose administered [Not Recovered/Not Resolved]
  - Injection site erythema [Not Recovered/Not Resolved]
  - Injection site bruising [Not Recovered/Not Resolved]
  - Wrong technique in drug usage process [Unknown]
  - Device malfunction [Unknown]
